FAERS Safety Report 8140237-1 (Version None)
Quarter: 2012Q1

REPORT INFORMATION
  Report Type: 
  Country: None (occurrence: None)
  Receive Date: 20120216
  Receipt Date: 20120206
  Transmission Date: 20120608
  Serious: No
  Sender: FDA-Public Use
  Company Number: US-BIOGENIDEC-2012BI004699

PATIENT
  Sex: Female

DRUGS (1)
  1. AVONEX [Suspect]
     Indication: MULTIPLE SCLEROSIS
     Route: 030
     Dates: start: 20010201

REACTIONS (5)
  - NECK PAIN [None]
  - ARTHRALGIA [None]
  - LOWER EXTREMITY MASS [None]
  - PAIN IN EXTREMITY [None]
  - URINARY INCONTINENCE [None]
